FAERS Safety Report 7376555-4 (Version None)
Quarter: 2011Q1

REPORT INFORMATION
  Report Type: 
  Country: None (occurrence: None)
  Receive Date: 20110325
  Receipt Date: 20110316
  Transmission Date: 20110831
  Serious: Yes (Other)
  Sender: FDA-Public Use
  Company Number: RU-GENENTECH-315544

PATIENT
  Age: 74 Year
  Sex: Female

DRUGS (4)
  1. FLUGALIN [Concomitant]
     Indication: RHEUMATOID ARTHRITIS
     Dosage: UNK
  2. METHOTREXATE [Concomitant]
     Indication: RHEUMATOID ARTHRITIS
     Dosage: 12.5 MG, 1/WEEK
     Dates: start: 20090701
  3. RITUXIMAB [Suspect]
     Indication: RHEUMATOID ARTHRITIS
     Dosage: 1000 MG, Q2W
     Route: 042
     Dates: start: 20091001
  4. PREDNISOLONE [Concomitant]
     Indication: RHEUMATOID ARTHRITIS
     Dosage: UNK
     Route: 048

REACTIONS (6)
  - PNEUMONIA [None]
  - MYOCARDIAL INFARCTION [None]
  - COLON CANCER [None]
  - LYMPHADENECTOMY [None]
  - ATRIAL FIBRILLATION [None]
  - SIGMOIDECTOMY [None]
